FAERS Safety Report 8174748-X (Version None)
Quarter: 2012Q1

REPORT INFORMATION
  Report Type: 
  Country: None (occurrence: None)
  Receive Date: 20120229
  Receipt Date: 20120201
  Transmission Date: 20120608
  Serious: Yes (Hospitalization)
  Sender: FDA-Public Use
  Company Number: DE-GLAXOSMITHKLINE-D0074346A

PATIENT
  Sex: Female
  Weight: 60 kg

DRUGS (4)
  1. AMISULPRIDE [Concomitant]
     Indication: PSYCHOTIC DISORDER
     Dosage: 800MG PER DAY
     Route: 065
  2. CITALOPRAM HYDROBROMIDE [Concomitant]
     Indication: PSYCHOTIC DISORDER
     Dosage: 10MG PER DAY
     Route: 065
     Dates: end: 20120101
  3. ARIPIPRAZOLE [Concomitant]
     Indication: PSYCHOTIC DISORDER
     Dosage: 20MG PER DAY
     Route: 065
  4. LAMICTAL [Suspect]
     Indication: PSYCHOTIC DISORDER
     Dosage: 250MG PER DAY
     Route: 048
     Dates: start: 20080101

REACTIONS (1)
  - GASTROINTESTINAL HYPERMOTILITY [None]
